FAERS Safety Report 8105616-7 (Version None)
Quarter: 2012Q1

REPORT INFORMATION
  Report Type: 
  Country: None (occurrence: None)
  Receive Date: 20120201
  Receipt Date: 20120119
  Transmission Date: 20120608
  Serious: Yes (Death, Other)
  Sender: FDA-Public Use
  Company Number: US-ELI_LILLY_AND_COMPANY-US201201006003

PATIENT
  Sex: Male

DRUGS (11)
  1. COUMADIN [Concomitant]
     Dosage: UNK, UNKNOWN
     Route: 065
  2. VITAMIN B-12 [Concomitant]
     Dosage: UNK, UNKNOWN
     Route: 065
  3. FORTEO [Suspect]
     Indication: OSTEOPOROSIS
     Dosage: 20 UG, QD
     Route: 065
     Dates: start: 20100401, end: 20110901
  4. SYMBICORT [Concomitant]
     Dosage: UNK, BID
     Route: 065
  5. CENTRUM [Concomitant]
     Dosage: UNK, UNKNOWN
     Route: 065
  6. ALBUTEROL [Concomitant]
     Dosage: UNK, QID
     Route: 065
  7. CALCIUM +VIT D [Concomitant]
     Dosage: UNK, UNKNOWN
     Route: 065
  8. SPIRIVA [Concomitant]
     Dosage: UNK, QD
     Route: 065
  9. CELEBREX [Concomitant]
     Dosage: UNK, UNKNOWN
     Route: 065
  10. GARLIC [Concomitant]
     Dosage: UNK, UNKNOWN
     Route: 065
  11. FISH OIL [Concomitant]
     Dosage: UNK, UNKNOWN
     Route: 065

REACTIONS (3)
  - BONE NEOPLASM MALIGNANT [None]
  - PAIN [None]
  - LUNG CANCER METASTATIC [None]
